FAERS Safety Report 18967540 (Version 1)
Quarter: 2021Q1

REPORT INFORMATION
  Report Type: Report from Study
  Country: JP (occurrence: JP)
  Receive Date: 20210304
  Receipt Date: 20210304
  Transmission Date: 20210420
  Serious: Yes (Other)
  Sender: FDA-Public Use
  Company Number: JP-ROCHE-2775993

PATIENT
  Age: 70 Year
  Sex: Male

DRUGS (3)
  1. OBP 301 [Suspect]
     Active Substance: SURATADENOTUREV
     Indication: HEPATOCELLULAR CARCINOMA
     Dosage: WHICH WAS MOST RECENT DOSE ALSO
     Route: 036
     Dates: start: 20210203
  2. BEVACIZUMAB. [Suspect]
     Active Substance: BEVACIZUMAB
     Indication: HEPATOCELLULAR CARCINOMA
     Dosage: ON ON 10/FEB/2021,   RECEIVED MOST RECEIVED DOSE OF BEVACIZUMAB
     Route: 042
     Dates: start: 20210203
  3. ATEZOLIZUMAB. [Suspect]
     Active Substance: ATEZOLIZUMAB
     Indication: HEPATOCELLULAR CARCINOMA
     Route: 041
     Dates: start: 20210203

REACTIONS (1)
  - Hepatic function abnormal [Recovering/Resolving]

NARRATIVE: CASE EVENT DATE: 20210217
